FAERS Safety Report 18066150 (Version 1)
Quarter: 2020Q3

REPORT INFORMATION
  Report Type: Spontaneous
  Country: US (occurrence: US)
  Receive Date: 20200724
  Receipt Date: 20200724
  Transmission Date: 20201103
  Serious: No
  Sender: FDA-Public Use
  Company Number: US-GLAXOSMITHKLINE-US2020134001

PATIENT
  Age: 54 Year
  Sex: Female

DRUGS (1)
  1. ALLI [Suspect]
     Active Substance: ORLISTAT
     Indication: WEIGHT LOSS DIET
     Dosage: UNK
     Dates: start: 202007, end: 20200715

REACTIONS (5)
  - Steatorrhoea [Unknown]
  - Treatment noncompliance [Unknown]
  - Product use issue [Unknown]
  - Therapeutic product effect variable [Unknown]
  - Abdominal distension [Unknown]

NARRATIVE: CASE EVENT DATE: 202007
